FAERS Safety Report 7721289-7 (Version None)
Quarter: 2011Q3

REPORT INFORMATION
  Report Type: 
  Country: None (occurrence: None)
  Receive Date: 20110831
  Receipt Date: 20110819
  Transmission Date: 20111222
  Serious: Yes (Other)
  Sender: FDA-Public Use
  Company Number: PHHY2011TN76021

PATIENT
  Age: 83 Year
  Sex: Male

DRUGS (1)
  1. ZOMETA [Suspect]
     Indication: BONE LESION
     Dosage: 4 MG, QMO
     Dates: start: 20080101, end: 20110701

REACTIONS (1)
  - OSTEONECROSIS OF JAW [None]
